FAERS Safety Report 7119621-0 (Version None)
Quarter: 2010Q4

REPORT INFORMATION
  Report Type: 
  Country: None (occurrence: None)
  Receive Date: 20101123
  Receipt Date: 20101116
  Transmission Date: 20110411
  Serious: Yes (Hospitalization, Disabling, Other)
  Sender: FDA-Public Use
  Company Number: JP-BRISTOL-MYERS SQUIBB COMPANY-14609333

PATIENT
  Age: 52 Year
  Sex: Male

DRUGS (18)
  1. SPRYCEL [Suspect]
     Indication: ACUTE LYMPHOCYTIC LEUKAEMIA
     Dosage: DASATINIB INITIALLY 140MG/D 18JUN08-17JUL08
     Route: 048
     Dates: start: 20090303, end: 20090420
  2. CLINDAMYCIN HCL [Suspect]
  3. GANCICLOVIR [Suspect]
     Dosage: 230MG ON 27APR, 460MG ON 28APR, 230MG ON 29APR09.
     Route: 042
     Dates: start: 20090427
  4. AMLODIPINE [Concomitant]
     Dosage: TAB
     Route: 048
  5. ZOVIRAX [Concomitant]
     Indication: PROPHYLAXIS
     Route: 048
     Dates: start: 20090611
  6. PREDNISOLONE [Concomitant]
     Indication: TRANSPLANT
     Dosage: 1DF=20-10MG/D 3-16JUN,40MG 17JUN,20MG 18-22JUN,30MG 23-27JUN,25MG 28JUN-1JUL,20MG
     Route: 048
     Dates: start: 20090427
  7. AMOBAN [Concomitant]
     Indication: INSOMNIA
     Dosage: TAB
     Route: 048
     Dates: start: 20090406
  8. MIYA-BM [Concomitant]
     Indication: PROPHYLAXIS
     Route: 048
     Dates: start: 20090330
  9. ACYCLOVIR [Concomitant]
     Route: 048
  10. URSO 250 [Concomitant]
     Route: 048
     Dates: start: 20090429
  11. SENNOSIDE A+B [Concomitant]
     Route: 048
  12. MYCOSYST [Concomitant]
     Indication: PROPHYLAXIS
     Dosage: CAP
     Route: 048
     Dates: start: 20090429
  13. AMARYL [Concomitant]
     Dosage: TAB
     Route: 048
     Dates: start: 20090608, end: 20090703
  14. BAKTAR [Concomitant]
     Indication: INFECTION
     Dosage: 1 DF = 2 TABS
     Route: 048
     Dates: start: 20090605
  15. MAGMITT [Concomitant]
     Indication: CONSTIPATION
     Dosage: TAB
     Route: 048
     Dates: start: 20090523
  16. HIRUDOID [Concomitant]
     Dosage: LOTION
     Route: 061
     Dates: start: 20090603
  17. TERRA-CORTRIL [Concomitant]
     Route: 061
     Dates: start: 20090602
  18. ENSURE [Concomitant]
     Route: 048
     Dates: start: 20090506

REACTIONS (7)
  - ANAEMIA [None]
  - FATIGUE [None]
  - HEPATIC FUNCTION ABNORMAL [None]
  - INTERSTITIAL LUNG DISEASE [None]
  - PLATELET COUNT DECREASED [None]
  - PNEUMOCYSTIS JIROVECI PNEUMONIA [None]
  - PNEUMOMEDIASTINUM [None]
